FAERS Safety Report 14298482 (Version 12)
Quarter: 2020Q3

REPORT INFORMATION
  Report Type: Report from Study
  Country: US (occurrence: US)
  Receive Date: 20171218
  Receipt Date: 20200824
  Transmission Date: 20201102
  Serious: Yes (Hospitalization, Other)
  Sender: FDA-Public Use
  Company Number: US-ACTELION-A-NJ2017-164177

PATIENT
  Sex: Female
  Weight: 88.89 kg

DRUGS (10)
  1. OPSUMIT [Suspect]
     Active Substance: MACITENTAN
     Indication: PULMONARY ARTERIAL HYPERTENSION
     Dosage: 10 MG, QD
     Route: 048
  2. CELLCEPT [Concomitant]
     Active Substance: MYCOPHENOLATE MOFETIL\MYCOPHENOLATE MOFETIL HYDROCHLORIDE
     Dosage: UNK, TID
  3. OPSUMIT [Suspect]
     Active Substance: MACITENTAN
     Dosage: 10 MG, QD
     Route: 048
  4. ORENITRAM [Suspect]
     Active Substance: TREPROSTINIL
     Indication: PRODUCT USED FOR UNKNOWN INDICATION
     Dosage: UNK
     Route: 065
  5. TIKOSYN [Concomitant]
     Active Substance: DOFETILIDE
     Indication: PRODUCT USED FOR UNKNOWN INDICATION
     Dosage: UNK
     Route: 065
  6. ADCIRCA [Concomitant]
     Active Substance: TADALAFIL
     Dosage: UNK
     Dates: start: 20200622
  7. XARELTO [Concomitant]
     Active Substance: RIVAROXABAN
  8. CELLCEPT [Concomitant]
     Active Substance: MYCOPHENOLATE MOFETIL\MYCOPHENOLATE MOFETIL HYDROCHLORIDE
     Dosage: UNK
  9. PREDNISONE. [Concomitant]
     Active Substance: PREDNISONE
     Dosage: 60 MG, QD FOR 3 WEEKS
  10. ADCIRCA [Concomitant]
     Active Substance: TADALAFIL
     Dosage: UNK
     Dates: end: 20200618

REACTIONS (24)
  - Autoimmune disorder [Unknown]
  - Fluid retention [Unknown]
  - Gait disturbance [Unknown]
  - Skin ulcer [Unknown]
  - Ocular hyperaemia [Unknown]
  - Inflammation [Unknown]
  - Dyspnoea exertional [Unknown]
  - Rhinorrhoea [Unknown]
  - Fungal infection [Unknown]
  - Sluggishness [Unknown]
  - Feeling abnormal [Unknown]
  - Paraesthesia [Unknown]
  - Limb discomfort [Unknown]
  - Seasonal allergy [Unknown]
  - Back pain [Unknown]
  - Oxygen saturation decreased [Unknown]
  - Pain in extremity [Unknown]
  - Infection [Unknown]
  - Lung disorder [Unknown]
  - Atrial fibrillation [Unknown]
  - Heart rate increased [Unknown]
  - Therapy change [Unknown]
  - Cardiac flutter [Unknown]
  - Scar [Unknown]
